FAERS Safety Report 18069884 (Version 3)
Quarter: 2020Q4

REPORT INFORMATION
  Report Type: Report from Study
  Country: ES (occurrence: ES)
  Receive Date: 20200727
  Receipt Date: 20201001
  Transmission Date: 20210113
  Serious: Yes (Hospitalization)
  Sender: FDA-Public Use
  Company Number: ES-AMGEN-ESPCT2020118554

PATIENT
  Age: 67 Year
  Sex: Male
  Weight: 61.8 kg

DRUGS (16)
  1. 5-FU [FLUOROURACIL] [Suspect]
     Active Substance: FLUOROURACIL
     Dosage: 712 MILLIGRAM, Q2WK
     Route: 040
     Dates: start: 20191120
  2. PARACETAMOL [Concomitant]
     Active Substance: ACETAMINOPHEN
     Indication: PYREXIA
  3. METAMIZOL [Concomitant]
     Active Substance: METAMIZOLE SODIUM
     Indication: PAIN
  4. PANITUMUMAB [Suspect]
     Active Substance: PANITUMUMAB
     Indication: COLORECTAL CANCER METASTATIC
     Dosage: 367.8 MILLIGRAM, Q2WK
     Route: 042
     Dates: start: 20191120
  5. OMEPRAZOLE. [Concomitant]
     Active Substance: OMEPRAZOLE
     Indication: PROPHYLAXIS
     Dosage: 80 MILLIGRAM, QD
     Route: 048
  6. CODEISAN [Concomitant]
     Active Substance: CODEINE PHOSPHATE
     Indication: DIARRHOEA
     Dosage: 28.7 MILLIGRAM
     Route: 048
  7. FOLINIC ACID [Suspect]
     Active Substance: LEUCOVORIN
     Indication: COLORECTAL CANCER METASTATIC
     Dosage: 668 MILLIGRAM, Q2WK
     Route: 042
     Dates: start: 20191120
  8. QUETIAPINE. [Concomitant]
     Active Substance: QUETIAPINE
     Indication: PSYCHOTIC DISORDER
     Dosage: 25 MILLIGRAM, QD
  9. OXALIPLATIN. [Suspect]
     Active Substance: OXALIPLATIN
     Indication: COLORECTAL CANCER METASTATIC
     Dosage: 106.40 MILLIGRAM, Q2WK
     Route: 042
     Dates: start: 20191120
  10. PARACETAMOL [Concomitant]
     Active Substance: ACETAMINOPHEN
     Indication: PAIN
     Dosage: UNK UNK, AS NECESSARY
     Route: 048
  11. METAMIZOL [Concomitant]
     Active Substance: METAMIZOLE SODIUM
     Indication: PYREXIA
     Dosage: UNK UNK, AS NECESSARY
     Route: 048
  12. 5-FU [FLUOROURACIL] [Suspect]
     Active Substance: FLUOROURACIL
     Dosage: 2404.8 MILLIGRAM, Q2WK
     Route: 041
  13. COLCHICINE. [Concomitant]
     Active Substance: COLCHICINE
     Indication: GOUTY ARTHRITIS
     Dosage: 0.5 MILLIGRAM, TID
     Route: 048
  14. 5-FU [FLUOROURACIL] [Suspect]
     Active Substance: FLUOROURACIL
     Indication: COLORECTAL CANCER METASTATIC
     Dosage: 4272 MILLIGRAM, Q2WK
     Route: 041
     Dates: start: 20191120
  15. OXALIPLATIN. [Suspect]
     Active Substance: OXALIPLATIN
     Dosage: 85.17 MILLIGRAM, Q2WK
     Route: 042
  16. PREDNISONE. [Concomitant]
     Active Substance: PREDNISONE
     Dosage: 5 MILLIGRAM, QD
     Route: 048

REACTIONS (1)
  - Confusional state [Recovered/Resolved]

NARRATIVE: CASE EVENT DATE: 20200707
